FAERS Safety Report 8127248 (Version 4)
Quarter: 2013Q1

REPORT INFORMATION
  Report Type: Spontaneous
  Country: US (occurrence: US)
  Receive Date: 20110908
  Receipt Date: 20130118
  Transmission Date: 20140127
  Serious: Yes (Hospitalization, Other)
  Sender: FDA-Public Use
  Company Number: US-US-EMD SERONO, INC.-7081513

PATIENT
  Sex: Male

DRUGS (5)
  1. EGRIFTA [Suspect]
     Indication: LIPODYSTROPHY ACQUIRED
     Route: 058
     Dates: start: 201101, end: 201108
  2. EGRIFTA [Suspect]
     Route: 058
     Dates: start: 201111, end: 201204
  3. EGRIFTA [Suspect]
     Route: 058
     Dates: start: 20121125
  4. SEROSTIM [(SOMATROPIN (RDNA ORIGIN) FOR INJECTION)] [Suspect]
     Indication: PRODUCT USED FOR UNKNOWN INDICATION
     Dates: start: 2009, end: 2011
  5. UNSPECIFIED ANTIRETROVIRAL THERAPY [Concomitant]
     Indication: PRODUCT USED FOR UNKNOWN INDICATION
     Dates: start: 1994

REACTIONS (5)
  - Basal cell carcinoma [Recovered/Resolved]
  - Neoplasm [Recovered/Resolved]
  - Weight increased [Not Recovered/Not Resolved]
  - T-lymphocyte count increased [Not Recovered/Not Resolved]
  - Prostatic specific antigen increased [Not Recovered/Not Resolved]
